FAERS Safety Report 9226100 (Version 1)
Quarter: 2013Q2

REPORT INFORMATION
  Report Type: Spontaneous
  Country: US (occurrence: US)
  Receive Date: 20130411
  Receipt Date: 20130411
  Transmission Date: 20140414
  Serious: No
  Sender: FDA-Public Use
  Company Number: US-B.I. PHARMACEUTICALS,INC./RIDGEFIELD-2013-BI-09311BP

PATIENT
  Sex: Male

DRUGS (4)
  1. CATAPRES [Suspect]
  2. LASIX [Suspect]
  3. DILTIAZEM [Suspect]
  4. METOPROLOL [Suspect]

REACTIONS (1)
  - Somnolence [Recovered/Resolved]
